FAERS Safety Report 7962892-9 (Version None)
Quarter: 2011Q4

REPORT INFORMATION
  Report Type: 
  Country: None (occurrence: None)
  Receive Date: 20111207
  Receipt Date: 20111128
  Transmission Date: 20120403
  Serious: Yes (Hospitalization)
  Sender: FDA-Public Use
  Company Number: FR-ASTRAZENECA-2011SE72291

PATIENT
  Age: 35 Year
  Sex: Female

DRUGS (2)
  1. CRESTOR [Suspect]
     Route: 048
     Dates: start: 20110626, end: 20110706
  2. NOROXIN [Suspect]
     Route: 048
     Dates: start: 20110624, end: 20110704

REACTIONS (7)
  - DYSPNOEA [None]
  - CHEST DISCOMFORT [None]
  - ODYNOPHAGIA [None]
  - FACE OEDEMA [None]
  - URTICARIA [None]
  - DYSPHAGIA [None]
  - OEDEMA PERIPHERAL [None]
